FAERS Safety Report 7043473-0 (Version None)
Quarter: 2010Q3

REPORT INFORMATION
  Report Type: 
  Country: None (occurrence: None)
  Receive Date: 20100929
  Receipt Date: 20100618
  Transmission Date: 20110219
  Serious: No
  Sender: FDA-Public Use
  Company Number: US-WYE-H16090610

PATIENT
  Age: 86 Year
  Sex: Female
  Weight: 79.9 kg

DRUGS (6)
  1. PRISTIQ [Suspect]
     Dosage: 150 MG 1X PER 1 DAY, ORAL ; 50 MG 1X PER 1 DAY, ORAL ; 100 MG 1X PER 1 DAY, ORAL
     Route: 048
     Dates: start: 20100501, end: 20100610
  2. PRISTIQ [Suspect]
     Dosage: 150 MG 1X PER 1 DAY, ORAL ; 50 MG 1X PER 1 DAY, ORAL ; 100 MG 1X PER 1 DAY, ORAL
     Route: 048
     Dates: start: 20100611, end: 20100701
  3. PRISTIQ [Suspect]
     Dosage: 150 MG 1X PER 1 DAY, ORAL ; 50 MG 1X PER 1 DAY, ORAL ; 100 MG 1X PER 1 DAY, ORAL
     Route: 048
     Dates: start: 20100701
  4. INSULIN (INSULIN) [Concomitant]
  5. PLAVIX [Concomitant]
  6. POTASSIUM (POTASSIUM) [Concomitant]

REACTIONS (9)
  - BLOOD PRESSURE FLUCTUATION [None]
  - CONDITION AGGRAVATED [None]
  - CYSTITIS [None]
  - DYSARTHRIA [None]
  - HAIR DISORDER [None]
  - HAIR TEXTURE ABNORMAL [None]
  - HYPERHIDROSIS [None]
  - HYPERTENSION [None]
  - SOMNOLENCE [None]
